FAERS Safety Report 6858881-8 (Version None)
Quarter: 2010Q3

REPORT INFORMATION
  Report Type: 
  Country: None (occurrence: None)
  Receive Date: 20100719
  Receipt Date: 20080616
  Transmission Date: 20110219
  Serious: No
  Sender: FDA-Public Use
  Company Number: US-PFIZER INC-2008014181

PATIENT
  Sex: Female
  Weight: 74.09 kg

DRUGS (11)
  1. CHANTIX [Suspect]
     Indication: SMOKING CESSATION THERAPY
     Route: 048
     Dates: start: 20080124, end: 20080203
  2. ZOLOFT [Concomitant]
  3. NAVANE [Concomitant]
  4. KLONOPIN [Concomitant]
  5. PRILOSEC [Concomitant]
  6. ZETIA [Concomitant]
  7. FISH OIL [Concomitant]
  8. SYNTHROID [Concomitant]
  9. CRESTOR [Concomitant]
  10. SIMVASTATIN [Concomitant]
  11. ANTIPSYCHOTICS [Concomitant]

REACTIONS (11)
  - ABNORMAL DREAMS [None]
  - CONSTIPATION [None]
  - DIARRHOEA [None]
  - DRUG WITHDRAWAL SYNDROME [None]
  - HEADACHE [None]
  - HYPERHIDROSIS [None]
  - INFLUENZA [None]
  - NAUSEA [None]
  - NERVOUSNESS [None]
  - TEMPERATURE INTOLERANCE [None]
  - URINE ODOUR ABNORMAL [None]
